FAERS Safety Report 7641522-X (Version None)
Quarter: 2011Q3

REPORT INFORMATION
  Report Type: 
  Country: None (occurrence: None)
  Receive Date: 20110728
  Receipt Date: 20110718
  Transmission Date: 20111222
  Serious: Yes (Death)
  Sender: FDA-Public Use
  Company Number: IE-AMGEN-IRLSP2011030103

PATIENT
  Sex: Male

DRUGS (10)
  1. CARDURA [Concomitant]
  2. ZANTAC [Concomitant]
  3. CARDICOR [Concomitant]
  4. ARANESP [Suspect]
     Indication: RENAL FAILURE CHRONIC
     Dosage: 20 A?G, Q2WK
     Route: 058
  5. LIPITOR [Concomitant]
  6. ONE ALPHA [Concomitant]
  7. CALCIUM CARBONATE [Concomitant]
  8. FUROSEMIDE [Concomitant]
  9. LERCANIDIPINE [Concomitant]
  10. APROVEL [Concomitant]

REACTIONS (1)
  - DEATH [None]
